FAERS Safety Report 24430663 (Version 3)
Quarter: 2025Q2

REPORT INFORMATION
  Report Type: Spontaneous
  Country: CA (occurrence: CA)
  Receive Date: 20241013
  Receipt Date: 20250402
  Transmission Date: 20250716
  Serious: Yes (Death, Other)
  Sender: BRISTOL MYERS SQUIBB
  Company Number: CA-BRISTOL-MYERS SQUIBB COMPANY-2024-161324

PATIENT
  Age: 44 Year
  Sex: Female
  Weight: 78 kg

DRUGS (437)
  1. ORENCIA [Suspect]
     Active Substance: ABATACEPT
     Indication: Rheumatoid arthritis
     Route: 058
  2. ORENCIA [Suspect]
     Active Substance: ABATACEPT
  3. ORENCIA [Suspect]
     Active Substance: ABATACEPT
     Route: 048
  4. ORENCIA [Suspect]
     Active Substance: ABATACEPT
     Route: 042
  5. ORENCIA [Suspect]
     Active Substance: ABATACEPT
     Route: 042
  6. ORENCIA [Suspect]
     Active Substance: ABATACEPT
     Route: 042
  7. ORENCIA [Suspect]
     Active Substance: ABATACEPT
  8. ORENCIA [Suspect]
     Active Substance: ABATACEPT
     Route: 042
  9. ORENCIA [Suspect]
     Active Substance: ABATACEPT
     Route: 058
  10. ORENCIA [Suspect]
     Active Substance: ABATACEPT
     Route: 058
  11. ORENCIA [Suspect]
     Active Substance: ABATACEPT
     Route: 058
  12. ORENCIA [Suspect]
     Active Substance: ABATACEPT
     Route: 058
  13. ORENCIA [Suspect]
     Active Substance: ABATACEPT
  14. ORENCIA [Suspect]
     Active Substance: ABATACEPT
  15. ORENCIA [Suspect]
     Active Substance: ABATACEPT
  16. ORENCIA [Suspect]
     Active Substance: ABATACEPT
     Route: 042
  17. ORENCIA [Suspect]
     Active Substance: ABATACEPT
     Route: 058
  18. TRIAMCINOLONE ACETONIDE [Suspect]
     Active Substance: TRIAMCINOLONE ACETONIDE
     Indication: Rheumatoid arthritis
     Route: 014
  19. ORENCIA [Suspect]
     Active Substance: ABATACEPT
     Indication: Rheumatoid arthritis
     Route: 042
  20. ORENCIA [Suspect]
     Active Substance: ABATACEPT
     Route: 042
  21. ORENCIA [Suspect]
     Active Substance: ABATACEPT
     Route: 042
  22. ORENCIA [Suspect]
     Active Substance: ABATACEPT
     Route: 042
  23. ORENCIA [Suspect]
     Active Substance: ABATACEPT
     Indication: Rheumatoid arthritis
     Route: 048
  24. ACETAMINOPHEN [Concomitant]
     Active Substance: ACETAMINOPHEN
     Indication: Rheumatoid arthritis
  25. ACETAMINOPHEN [Concomitant]
     Active Substance: ACETAMINOPHEN
     Indication: Pyrexia
  26. ACETAMINOPHEN [Concomitant]
     Active Substance: ACETAMINOPHEN
     Indication: Pain
  27. OXYCODONE AND ACETAMINOPHEN [Concomitant]
     Active Substance: ACETAMINOPHEN\OXYCODONE HYDROCHLORIDE
     Indication: Product used for unknown indication
  28. ACTEMRA [Concomitant]
     Active Substance: TOCILIZUMAB
     Indication: Rheumatoid arthritis
  29. ACTEMRA [Concomitant]
     Active Substance: TOCILIZUMAB
  30. ACTEMRA [Concomitant]
     Active Substance: TOCILIZUMAB
     Route: 016
  31. ACTEMRA [Concomitant]
     Active Substance: TOCILIZUMAB
     Route: 058
  32. ACTEMRA [Concomitant]
     Active Substance: TOCILIZUMAB
     Route: 016
  33. ACTEMRA [Concomitant]
     Active Substance: TOCILIZUMAB
     Route: 016
  34. ACTEMRA [Concomitant]
     Active Substance: TOCILIZUMAB
     Route: 048
  35. ACTEMRA [Concomitant]
     Active Substance: TOCILIZUMAB
     Route: 061
  36. ACTEMRA [Concomitant]
     Active Substance: TOCILIZUMAB
     Route: 058
  37. ACTEMRA [Concomitant]
     Active Substance: TOCILIZUMAB
     Route: 042
  38. ACTEMRA [Concomitant]
     Active Substance: TOCILIZUMAB
     Route: 042
  39. ACTEMRA [Concomitant]
     Active Substance: TOCILIZUMAB
  40. ACTEMRA [Concomitant]
     Active Substance: TOCILIZUMAB
     Route: 042
  41. ACTEMRA [Concomitant]
     Active Substance: TOCILIZUMAB
     Route: 042
  42. ACTEMRA [Concomitant]
     Active Substance: TOCILIZUMAB
     Route: 058
  43. ACTEMRA [Concomitant]
     Active Substance: TOCILIZUMAB
     Route: 042
  44. ACTEMRA [Concomitant]
     Active Substance: TOCILIZUMAB
     Route: 058
  45. ACTEMRA [Concomitant]
     Active Substance: TOCILIZUMAB
  46. ACTEMRA [Concomitant]
     Active Substance: TOCILIZUMAB
     Route: 042
  47. ACTEMRA [Concomitant]
     Active Substance: TOCILIZUMAB
     Route: 042
  48. ACTEMRA [Concomitant]
     Active Substance: TOCILIZUMAB
  49. ACTEMRA [Concomitant]
     Active Substance: TOCILIZUMAB
     Route: 042
  50. ACTEMRA [Concomitant]
     Active Substance: TOCILIZUMAB
  51. ACTEMRA [Concomitant]
     Active Substance: TOCILIZUMAB
     Route: 042
  52. ACTEMRA [Concomitant]
     Active Substance: TOCILIZUMAB
     Route: 042
  53. ACTEMRA [Concomitant]
     Active Substance: TOCILIZUMAB
     Route: 042
  54. ACTEMRA [Concomitant]
     Active Substance: TOCILIZUMAB
     Route: 058
  55. ACTEMRA [Concomitant]
     Active Substance: TOCILIZUMAB
  56. ACTEMRA [Concomitant]
     Active Substance: TOCILIZUMAB
     Route: 042
  57. ACTEMRA [Concomitant]
     Active Substance: TOCILIZUMAB
     Route: 042
  58. ACTEMRA [Concomitant]
     Active Substance: TOCILIZUMAB
     Route: 048
  59. ACTEMRA [Concomitant]
     Active Substance: TOCILIZUMAB
     Route: 042
  60. ADALIMUMAB [Concomitant]
     Active Substance: ADALIMUMAB
     Indication: Rheumatoid arthritis
     Route: 058
  61. ADALIMUMAB [Concomitant]
     Active Substance: ADALIMUMAB
     Indication: Psoriatic arthropathy
     Route: 058
  62. ADALIMUMAB [Concomitant]
     Active Substance: ADALIMUMAB
     Route: 042
  63. ADALIMUMAB [Concomitant]
     Active Substance: ADALIMUMAB
     Route: 048
  64. ADALIMUMAB [Concomitant]
     Active Substance: ADALIMUMAB
     Route: 058
  65. ALENDRONATE SODIUM [Concomitant]
     Active Substance: ALENDRONATE SODIUM
     Indication: Rheumatoid arthritis
     Route: 048
  66. ALENDRONATE SODIUM [Concomitant]
     Active Substance: ALENDRONATE SODIUM
  67. ALENDRONATE SODIUM [Concomitant]
     Active Substance: ALENDRONATE SODIUM
     Route: 048
  68. ALENDRONIC ACID [Concomitant]
     Active Substance: ALENDRONIC ACID
     Indication: Rheumatoid arthritis
  69. ALENDRONIC ACID [Concomitant]
     Active Substance: ALENDRONIC ACID
     Route: 016
  70. ALENDRONIC ACID [Concomitant]
     Active Substance: ALENDRONIC ACID
  71. ALENDRONIC ACID [Concomitant]
     Active Substance: ALENDRONIC ACID
     Route: 048
  72. ALENDRONIC ACID [Concomitant]
     Active Substance: ALENDRONIC ACID
  73. PREDNISONE [Concomitant]
     Active Substance: PREDNISONE
     Indication: Systemic lupus erythematosus
     Route: 048
  74. PREDNISONE [Concomitant]
     Active Substance: PREDNISONE
     Indication: Synovitis
  75. PREDNISONE [Concomitant]
     Active Substance: PREDNISONE
     Indication: Rheumatoid arthritis
  76. PREDNISONE [Concomitant]
     Active Substance: PREDNISONE
     Indication: Psoriatic arthropathy
  77. PREDNISONE [Concomitant]
     Active Substance: PREDNISONE
     Indication: Pemphigus
     Route: 048
  78. PREDNISONE [Concomitant]
     Active Substance: PREDNISONE
     Indication: Inflammation
     Route: 048
  79. PREDNISONE [Concomitant]
     Active Substance: PREDNISONE
     Indication: Bursitis
     Route: 048
  80. PREDNISONE [Concomitant]
     Active Substance: PREDNISONE
  81. PREDNISONE [Concomitant]
     Active Substance: PREDNISONE
  82. APREMILAST [Concomitant]
     Active Substance: APREMILAST
     Indication: Product used for unknown indication
     Route: 048
  83. APREMILAST [Concomitant]
     Active Substance: APREMILAST
  84. APREPITANT [Concomitant]
     Active Substance: APREPITANT
     Indication: Product used for unknown indication
     Route: 042
  85. APREPITANT [Concomitant]
     Active Substance: APREPITANT
     Route: 042
  86. APREPITANT [Concomitant]
     Active Substance: APREPITANT
  87. APREPITANT [Concomitant]
     Active Substance: APREPITANT
     Route: 048
  88. ASACOL [Concomitant]
     Active Substance: MESALAMINE
     Indication: Product used for unknown indication
  89. CALCIUM CARBONATE [Concomitant]
     Active Substance: CALCIUM CARBONATE
     Indication: Product used for unknown indication
  90. CALCIUM GLUBIONATE [Concomitant]
     Active Substance: CALCIUM GLUBIONATE
     Indication: Product used for unknown indication
     Route: 016
  91. CALCIUM GLUBIONATE [Concomitant]
     Active Substance: CALCIUM GLUBIONATE
  92. CALCIUM GLUBIONATE [Concomitant]
     Active Substance: CALCIUM GLUBIONATE
  93. CALCIUM\CHOLECALCIFEROL [Concomitant]
     Active Substance: CALCIUM\CHOLECALCIFEROL
     Indication: Product used for unknown indication
  94. CELEBREX [Concomitant]
     Active Substance: CELECOXIB
     Indication: Rheumatoid arthritis
     Route: 048
  95. CELEBREX [Concomitant]
     Active Substance: CELECOXIB
     Indication: Arthritis
     Route: 048
  96. CELEBREX [Concomitant]
     Active Substance: CELECOXIB
  97. CELECOXIB [Concomitant]
     Active Substance: CELECOXIB
     Indication: Product used for unknown indication
  98. CELECOXIB [Concomitant]
     Active Substance: CELECOXIB
  99. CERTOLIZUMAB PEGOL [Concomitant]
     Active Substance: CERTOLIZUMAB PEGOL
     Indication: Product used for unknown indication
  100. CETIRIZINE HYDROCHLORIDE AND PSEUDOEPHEDRINE HYDROCHLORIDE [Concomitant]
     Active Substance: CETIRIZINE HYDROCHLORIDE\PSEUDOEPHEDRINE HYDROCHLORIDE
     Indication: Rheumatoid arthritis
  101. CETIRIZINE HYDROCHLORIDE AND PSEUDOEPHEDRINE HYDROCHLORIDE [Concomitant]
     Active Substance: CETIRIZINE HYDROCHLORIDE\PSEUDOEPHEDRINE HYDROCHLORIDE
     Route: 016
  102. CETIRIZINE HYDROCHLORIDE AND PSEUDOEPHEDRINE HYDROCHLORIDE [Concomitant]
     Active Substance: CETIRIZINE HYDROCHLORIDE\PSEUDOEPHEDRINE HYDROCHLORIDE
  103. CHLORAPREP [Concomitant]
     Active Substance: CHLORHEXIDINE GLUCONATE\ISOPROPYL ALCOHOL
     Indication: Product used for unknown indication
     Route: 048
  104. CHLORAPREP [Concomitant]
     Active Substance: CHLORHEXIDINE GLUCONATE\ISOPROPYL ALCOHOL
     Route: 061
  105. CHLORAPREP [Concomitant]
     Active Substance: CHLORHEXIDINE GLUCONATE\ISOPROPYL ALCOHOL
  106. CHLORAPREP [Concomitant]
     Active Substance: CHLORHEXIDINE GLUCONATE\ISOPROPYL ALCOHOL
     Route: 061
  107. CHLORHEXIDINE GLUCONATE [Concomitant]
     Active Substance: CHLORHEXIDINE GLUCONATE
     Indication: Product used for unknown indication
  108. CHLORHEXIDINE GLUCONATE [Concomitant]
     Active Substance: CHLORHEXIDINE GLUCONATE
     Route: 002
  109. CHLORHEXIDINE GLUCONATE [Concomitant]
     Active Substance: CHLORHEXIDINE GLUCONATE
     Route: 002
  110. CHLORHEXIDINE GLUCONATE [Concomitant]
     Active Substance: CHLORHEXIDINE GLUCONATE
     Route: 061
  111. CHLORHEXIDINE GLUCONATE [Concomitant]
     Active Substance: CHLORHEXIDINE GLUCONATE
  112. CHLORHEXIDINE GLUCONATE [Concomitant]
     Active Substance: CHLORHEXIDINE GLUCONATE
     Route: 061
  113. CHLORHEXIDINE GLUCONATE [Concomitant]
     Active Substance: CHLORHEXIDINE GLUCONATE
  114. CHLORHEXIDINE GLUCONATE [Concomitant]
     Active Substance: CHLORHEXIDINE GLUCONATE
     Route: 048
  115. CHLORHEXIDINE GLUCONATE [Concomitant]
     Active Substance: CHLORHEXIDINE GLUCONATE
  116. CIMZIA [Concomitant]
     Active Substance: CERTOLIZUMAB PEGOL
     Indication: Rheumatoid arthritis
  117. CIMZIA [Concomitant]
     Active Substance: CERTOLIZUMAB PEGOL
     Indication: Psoriatic arthropathy
  118. CIMZIA [Concomitant]
     Active Substance: CERTOLIZUMAB PEGOL
     Indication: Psoriasis
  119. CIMZIA [Concomitant]
     Active Substance: CERTOLIZUMAB PEGOL
  120. CIMZIA [Concomitant]
     Active Substance: CERTOLIZUMAB PEGOL
  121. CIMZIA [Concomitant]
     Active Substance: CERTOLIZUMAB PEGOL
     Route: 058
  122. CIMZIA [Concomitant]
     Active Substance: CERTOLIZUMAB PEGOL
     Route: 042
  123. CIMZIA [Concomitant]
     Active Substance: CERTOLIZUMAB PEGOL
  124. CIMZIA [Concomitant]
     Active Substance: CERTOLIZUMAB PEGOL
     Route: 058
  125. CIMZIA [Concomitant]
     Active Substance: CERTOLIZUMAB PEGOL
     Route: 058
  126. CIMZIA [Concomitant]
     Active Substance: CERTOLIZUMAB PEGOL
     Route: 005
  127. CIMZIA [Concomitant]
     Active Substance: CERTOLIZUMAB PEGOL
     Route: 058
  128. CIMZIA [Concomitant]
     Active Substance: CERTOLIZUMAB PEGOL
     Route: 058
  129. CIMZIA [Concomitant]
     Active Substance: CERTOLIZUMAB PEGOL
     Route: 058
  130. CORTISONE ACETATE [Concomitant]
     Active Substance: CORTISONE ACETATE
     Indication: Rheumatoid arthritis
     Route: 061
  131. CORTISONE ACETATE [Concomitant]
     Active Substance: CORTISONE ACETATE
     Route: 061
  132. CORTISONE ACETATE [Concomitant]
     Active Substance: CORTISONE ACETATE
     Route: 048
  133. CORTISONE ACETATE [Concomitant]
     Active Substance: CORTISONE ACETATE
     Route: 048
  134. CORTISONE ACETATE [Concomitant]
     Active Substance: CORTISONE ACETATE
  135. CORTISONE ACETATE [Concomitant]
     Active Substance: CORTISONE ACETATE
  136. COSENTYX [Concomitant]
     Active Substance: SECUKINUMAB
     Indication: Rheumatoid arthritis
     Route: 042
  137. COSENTYX [Concomitant]
     Active Substance: SECUKINUMAB
     Route: 005
  138. COSENTYX [Concomitant]
     Active Substance: SECUKINUMAB
     Route: 005
  139. COSENTYX [Concomitant]
     Active Substance: SECUKINUMAB
     Route: 042
  140. DESOXIMETASONE [Concomitant]
     Active Substance: DESOXIMETASONE
     Indication: Rheumatoid arthritis
     Route: 061
  141. DESOXIMETASONE [Concomitant]
     Active Substance: DESOXIMETASONE
  142. DESOXIMETASONE [Concomitant]
     Active Substance: DESOXIMETASONE
     Route: 003
  143. DESOXIMETASONE [Concomitant]
     Active Substance: DESOXIMETASONE
     Route: 048
  144. DESOXIMETASONE [Concomitant]
     Active Substance: DESOXIMETASONE
     Route: 048
  145. DESOXIMETASONE [Concomitant]
     Active Substance: DESOXIMETASONE
     Route: 003
  146. DESOXIMETASONE [Concomitant]
     Active Substance: DESOXIMETASONE
     Route: 042
  147. DESOXIMETASONE [Concomitant]
     Active Substance: DESOXIMETASONE
     Route: 048
  148. DESOXIMETASONE [Concomitant]
     Active Substance: DESOXIMETASONE
     Route: 048
  149. DESOXIMETASONE [Concomitant]
     Active Substance: DESOXIMETASONE
     Route: 058
  150. DESOXIMETASONE [Concomitant]
     Active Substance: DESOXIMETASONE
  151. DESOXIMETASONE [Concomitant]
     Active Substance: DESOXIMETASONE
     Route: 003
  152. DESOXIMETASONE [Concomitant]
     Active Substance: DESOXIMETASONE
     Route: 058
  153. DESOXIMETASONE [Concomitant]
     Active Substance: DESOXIMETASONE
     Route: 061
  154. DESOXIMETASONE [Concomitant]
     Active Substance: DESOXIMETASONE
     Route: 048
  155. DESOXIMETASONE [Concomitant]
     Active Substance: DESOXIMETASONE
     Route: 058
  156. DESOXIMETASONE [Concomitant]
     Active Substance: DESOXIMETASONE
     Route: 003
  157. DESOXIMETASONE [Concomitant]
     Active Substance: DESOXIMETASONE
  158. DESOXIMETASONE [Concomitant]
     Active Substance: DESOXIMETASONE
     Route: 003
  159. DESOXIMETASONE [Concomitant]
     Active Substance: DESOXIMETASONE
  160. DESOXIMETASONE [Concomitant]
     Active Substance: DESOXIMETASONE
     Route: 048
  161. DESOXIMETASONE [Concomitant]
     Active Substance: DESOXIMETASONE
     Route: 061
  162. DICLOFENAC [Concomitant]
     Active Substance: DICLOFENAC
     Indication: Product used for unknown indication
  163. DICLOFENAC [Concomitant]
     Active Substance: DICLOFENAC
     Route: 047
  164. DICLOFENAC DIETHYLAMINE [Concomitant]
     Active Substance: DICLOFENAC DIETHYLAMINE
     Indication: Product used for unknown indication
  165. DICLOFENAC POTASSIUM [Concomitant]
     Active Substance: DICLOFENAC POTASSIUM
     Indication: Product used for unknown indication
     Route: 058
  166. DICLOFENAC POTASSIUM [Concomitant]
     Active Substance: DICLOFENAC POTASSIUM
     Route: 048
  167. DICLOFENAC SODIUM [Concomitant]
     Active Substance: DICLOFENAC SODIUM
     Indication: Product used for unknown indication
     Route: 048
  168. DICLOFENAC SODIUM [Concomitant]
     Active Substance: DICLOFENAC SODIUM
     Route: 047
  169. DICLOFENAC SODIUM [Concomitant]
     Active Substance: DICLOFENAC SODIUM
     Route: 058
  170. DICLOFENAC SODIUM [Concomitant]
     Active Substance: DICLOFENAC SODIUM
  171. DICLOFENAC SODIUM [Concomitant]
     Active Substance: DICLOFENAC SODIUM
  172. DICLOFENAC SODIUM [Concomitant]
     Active Substance: DICLOFENAC SODIUM
  173. DICLOFENAC SODIUM [Concomitant]
     Active Substance: DICLOFENAC SODIUM
     Route: 047
  174. DILTIAZEM [Concomitant]
     Active Substance: DILTIAZEM
     Indication: Product used for unknown indication
  175. DILTIAZEM HYDROCHLORIDE [Concomitant]
     Active Substance: DILTIAZEM HYDROCHLORIDE
     Indication: Product used for unknown indication
     Route: 042
  176. DILTIAZEM HYDROCHLORIDE [Concomitant]
     Active Substance: DILTIAZEM HYDROCHLORIDE
  177. DOXYCYCLINE [Concomitant]
     Active Substance: DOXYCYCLINE
     Indication: Product used for unknown indication
  178. ENBREL [Concomitant]
     Active Substance: ETANERCEPT
     Indication: Rheumatoid arthritis
  179. ENBREL [Concomitant]
     Active Substance: ETANERCEPT
     Indication: Psoriatic arthropathy
  180. ENBREL [Concomitant]
     Active Substance: ETANERCEPT
     Route: 058
  181. ENBREL [Concomitant]
     Active Substance: ETANERCEPT
     Route: 058
  182. ENBREL [Concomitant]
     Active Substance: ETANERCEPT
  183. ENBREL [Concomitant]
     Active Substance: ETANERCEPT
     Route: 058
  184. ENBREL [Concomitant]
     Active Substance: ETANERCEPT
     Route: 058
  185. ENBREL [Concomitant]
     Active Substance: ETANERCEPT
     Route: 058
  186. ENBREL [Concomitant]
     Active Substance: ETANERCEPT
     Route: 058
  187. ENTYVIO [Concomitant]
     Active Substance: VEDOLIZUMAB
     Indication: Product used for unknown indication
  188. ERELZI [Concomitant]
     Active Substance: ETANERCEPT-SZZS
     Indication: Rheumatoid arthritis
  189. ERELZI [Concomitant]
     Active Substance: ETANERCEPT-SZZS
  190. ERELZI [Concomitant]
     Active Substance: ETANERCEPT-SZZS
  191. ERELZI [Concomitant]
     Active Substance: ETANERCEPT-SZZS
     Route: 058
  192. ERELZI [Concomitant]
     Active Substance: ETANERCEPT-SZZS
     Route: 058
  193. FLUMETHASONE PIVALATE [Concomitant]
     Active Substance: FLUMETHASONE PIVALATE
     Indication: Rheumatoid arthritis
     Route: 003
  194. FLUMETHASONE PIVALATE [Concomitant]
     Active Substance: FLUMETHASONE PIVALATE
  195. FLUMETHASONE PIVALATE [Concomitant]
     Active Substance: FLUMETHASONE PIVALATE
  196. FOLIC ACID [Concomitant]
     Active Substance: FOLIC ACID
     Indication: Rheumatoid arthritis
  197. FOLIC ACID [Concomitant]
     Active Substance: FOLIC ACID
  198. FOLIC ACID [Concomitant]
     Active Substance: FOLIC ACID
  199. FOLIC ACID [Concomitant]
     Active Substance: FOLIC ACID
     Route: 048
  200. FOLIC ACID [Concomitant]
     Active Substance: FOLIC ACID
  201. FOLIC ACID [Concomitant]
     Active Substance: FOLIC ACID
     Route: 058
  202. FOLIC ACID [Concomitant]
     Active Substance: FOLIC ACID
  203. FOLIC ACID [Concomitant]
     Active Substance: FOLIC ACID
  204. FOLIC ACID [Concomitant]
     Active Substance: FOLIC ACID
     Route: 048
  205. FOLIC ACID [Concomitant]
     Active Substance: FOLIC ACID
     Route: 048
  206. FOLIC ACID [Concomitant]
     Active Substance: FOLIC ACID
     Route: 048
  207. FOLIC ACID [Concomitant]
     Active Substance: FOLIC ACID
  208. FOLIC ACID [Concomitant]
     Active Substance: FOLIC ACID
  209. FOLIC ACID [Concomitant]
     Active Substance: FOLIC ACID
  210. FOLIC ACID [Concomitant]
     Active Substance: FOLIC ACID
  211. FOLIC ACID [Concomitant]
     Active Substance: FOLIC ACID
  212. FOLIC ACID [Concomitant]
     Active Substance: FOLIC ACID
  213. FOLIC ACID [Concomitant]
     Active Substance: FOLIC ACID
  214. FOLIC ACID [Concomitant]
     Active Substance: FOLIC ACID
  215. FOLIC ACID [Concomitant]
     Active Substance: FOLIC ACID
  216. FOLIC ACID [Concomitant]
     Active Substance: FOLIC ACID
  217. FOLIC ACID [Concomitant]
     Active Substance: FOLIC ACID
     Route: 048
  218. FOLIC ACID [Concomitant]
     Active Substance: FOLIC ACID
  219. FOSAMAX [Concomitant]
     Active Substance: ALENDRONATE SODIUM
     Indication: Rheumatoid arthritis
  220. FOSAMAX [Concomitant]
     Active Substance: ALENDRONATE SODIUM
     Route: 048
  221. FOSAMAX [Concomitant]
     Active Substance: ALENDRONATE SODIUM
     Route: 016
  222. FOSAMAX [Concomitant]
     Active Substance: ALENDRONATE SODIUM
     Route: 058
  223. FOSAMAX [Concomitant]
     Active Substance: ALENDRONATE SODIUM
     Route: 048
  224. FOSAMAX [Concomitant]
     Active Substance: ALENDRONATE SODIUM
     Route: 048
  225. FOSAMAX [Concomitant]
     Active Substance: ALENDRONATE SODIUM
     Route: 005
  226. FOSAMAX [Concomitant]
     Active Substance: ALENDRONATE SODIUM
     Route: 005
  227. FOSAMAX [Concomitant]
     Active Substance: ALENDRONATE SODIUM
  228. FOSAMAX [Concomitant]
     Active Substance: ALENDRONATE SODIUM
     Route: 048
  229. FOSAMAX [Concomitant]
     Active Substance: ALENDRONATE SODIUM
     Route: 048
  230. FOSAMAX [Concomitant]
     Active Substance: ALENDRONATE SODIUM
     Route: 048
  231. FOSAMAX [Concomitant]
     Active Substance: ALENDRONATE SODIUM
  232. GOLIMUMAB [Concomitant]
     Active Substance: GOLIMUMAB
     Indication: Rheumatoid arthritis
  233. GOLIMUMAB [Concomitant]
     Active Substance: GOLIMUMAB
     Route: 058
  234. HUMIRA [Concomitant]
     Active Substance: ADALIMUMAB
     Indication: Rheumatoid arthritis
     Route: 058
  235. HUMIRA [Concomitant]
     Active Substance: ADALIMUMAB
     Indication: Psoriatic arthropathy
     Route: 058
  236. HUMIRA [Concomitant]
     Active Substance: ADALIMUMAB
  237. HUMIRA [Concomitant]
     Active Substance: ADALIMUMAB
     Route: 058
  238. HUMIRA [Concomitant]
     Active Substance: ADALIMUMAB
     Route: 058
  239. HYDROCORTISONE SODIUM SUCCINATE [Concomitant]
     Active Substance: HYDROCORTISONE SODIUM SUCCINATE
     Indication: Rheumatoid arthritis
  240. HYDROCORTISONE SODIUM SUCCINATE [Concomitant]
     Active Substance: HYDROCORTISONE SODIUM SUCCINATE
     Route: 003
  241. HYDROCORTISONE SODIUM SUCCINATE [Concomitant]
     Active Substance: HYDROCORTISONE SODIUM SUCCINATE
     Route: 058
  242. HYDROCORTISONE SODIUM SUCCINATE [Concomitant]
     Active Substance: HYDROCORTISONE SODIUM SUCCINATE
  243. HYDROCORTISONE SODIUM SUCCINATE [Concomitant]
     Active Substance: HYDROCORTISONE SODIUM SUCCINATE
     Route: 058
  244. HYDROCORTISONE SODIUM SUCCINATE [Concomitant]
     Active Substance: HYDROCORTISONE SODIUM SUCCINATE
  245. HYDROCORTISONE SODIUM SUCCINATE [Concomitant]
     Active Substance: HYDROCORTISONE SODIUM SUCCINATE
     Route: 061
  246. HYDROCORTISONE SODIUM SUCCINATE [Concomitant]
     Active Substance: HYDROCORTISONE SODIUM SUCCINATE
     Route: 048
  247. HYDROCORTISONE SODIUM SUCCINATE [Concomitant]
     Active Substance: HYDROCORTISONE SODIUM SUCCINATE
  248. HYDROCORTISONE SODIUM SUCCINATE [Concomitant]
     Active Substance: HYDROCORTISONE SODIUM SUCCINATE
     Route: 061
  249. HYDROXYCHLOROQUINE [Concomitant]
     Active Substance: HYDROXYCHLOROQUINE
     Indication: Rheumatoid arthritis
  250. HYDROXYCHLOROQUINE [Concomitant]
     Active Substance: HYDROXYCHLOROQUINE
     Route: 048
  251. HYDROXYCHLOROQUINE [Concomitant]
     Active Substance: HYDROXYCHLOROQUINE
  252. HYDROXYCHLOROQUINE [Concomitant]
     Active Substance: HYDROXYCHLOROQUINE
  253. HYDROXYCHLOROQUINE [Concomitant]
     Active Substance: HYDROXYCHLOROQUINE
  254. HYDROXYCHLOROQUINE [Concomitant]
     Active Substance: HYDROXYCHLOROQUINE
  255. HYDROXYCHLOROQUINE [Concomitant]
     Active Substance: HYDROXYCHLOROQUINE
  256. HYDROXYCHLOROQUINE [Concomitant]
     Active Substance: HYDROXYCHLOROQUINE
  257. HYDROXYCHLOROQUINE [Concomitant]
     Active Substance: HYDROXYCHLOROQUINE
  258. HYDROXYCHLOROQUINE [Concomitant]
     Active Substance: HYDROXYCHLOROQUINE
  259. HYDROXYCHLOROQUINE [Concomitant]
     Active Substance: HYDROXYCHLOROQUINE
     Route: 058
  260. HYDROXYCHLOROQUINE [Concomitant]
     Active Substance: HYDROXYCHLOROQUINE
     Route: 048
  261. HYDROXYCHLOROQUINE [Concomitant]
     Active Substance: HYDROXYCHLOROQUINE
  262. HYDROXYCHLOROQUINE [Concomitant]
     Active Substance: HYDROXYCHLOROQUINE
  263. HYDROXYCHLOROQUINE SULFATE [Concomitant]
     Active Substance: HYDROXYCHLOROQUINE SULFATE
     Indication: Rheumatoid arthritis
     Route: 048
  264. HYDROXYCHLOROQUINE SULFATE [Concomitant]
     Active Substance: HYDROXYCHLOROQUINE SULFATE
  265. HYDROXYCHLOROQUINE SULFATE [Concomitant]
     Active Substance: HYDROXYCHLOROQUINE SULFATE
     Route: 048
  266. HYDROXYCHLOROQUINE SULFATE [Concomitant]
     Active Substance: HYDROXYCHLOROQUINE SULFATE
     Route: 048
  267. HYDROXYCHLOROQUINE SULFATE [Concomitant]
     Active Substance: HYDROXYCHLOROQUINE SULFATE
  268. HYDROXYCHLOROQUINE SULFATE [Concomitant]
     Active Substance: HYDROXYCHLOROQUINE SULFATE
     Route: 048
  269. HYDROXYCHLOROQUINE SULFATE [Concomitant]
     Active Substance: HYDROXYCHLOROQUINE SULFATE
  270. HYDROXYCHLOROQUINE SULFATE [Concomitant]
     Active Substance: HYDROXYCHLOROQUINE SULFATE
     Route: 048
  271. INFLIXIMAB [Concomitant]
     Active Substance: INFLIXIMAB
     Indication: Rheumatoid arthritis
  272. INFLIXIMAB [Concomitant]
     Active Substance: INFLIXIMAB
     Route: 042
  273. INFLIXIMAB [Concomitant]
     Active Substance: INFLIXIMAB
  274. INFLIXIMAB [Concomitant]
     Active Substance: INFLIXIMAB
     Route: 042
  275. INFLIXIMAB [Concomitant]
     Active Substance: INFLIXIMAB
     Route: 042
  276. ISOPROPYL ALCOHOL [Concomitant]
     Active Substance: ISOPROPYL ALCOHOL
     Indication: Product used for unknown indication
     Route: 061
  277. LEFLUNOMIDE [Concomitant]
     Active Substance: LEFLUNOMIDE
     Indication: Rheumatoid arthritis
     Route: 048
  278. LEFLUNOMIDE [Concomitant]
     Active Substance: LEFLUNOMIDE
     Route: 048
  279. LEFLUNOMIDE [Concomitant]
     Active Substance: LEFLUNOMIDE
     Route: 048
  280. LYRICA [Concomitant]
     Active Substance: PREGABALIN
     Indication: Product used for unknown indication
  281. METHOTREXATE [Concomitant]
     Active Substance: METHOTREXATE
     Indication: Rheumatoid arthritis
     Route: 058
  282. METHOTREXATE [Concomitant]
     Active Substance: METHOTREXATE
     Route: 013
  283. METHOTREXATE [Concomitant]
     Active Substance: METHOTREXATE
  284. METHOTREXATE [Concomitant]
     Active Substance: METHOTREXATE
     Route: 048
  285. METHOTREXATE [Concomitant]
     Active Substance: METHOTREXATE
     Route: 048
  286. METHOTREXATE [Concomitant]
     Active Substance: METHOTREXATE
     Route: 048
  287. METHOTREXATE [Concomitant]
     Active Substance: METHOTREXATE
     Route: 048
  288. METHOTREXATE [Concomitant]
     Active Substance: METHOTREXATE
     Route: 048
  289. METHOTREXATE [Concomitant]
     Active Substance: METHOTREXATE
     Route: 048
  290. METHOTREXATE [Concomitant]
     Active Substance: METHOTREXATE
     Route: 048
  291. METHOTREXATE [Concomitant]
     Active Substance: METHOTREXATE
     Route: 048
  292. METHOTREXATE [Concomitant]
     Active Substance: METHOTREXATE
     Route: 048
  293. METHOTREXATE [Concomitant]
     Active Substance: METHOTREXATE
     Route: 048
  294. METHOTREXATE [Concomitant]
     Active Substance: METHOTREXATE
     Route: 048
  295. METHOTREXATE [Concomitant]
     Active Substance: METHOTREXATE
     Route: 048
  296. METHOTREXATE [Concomitant]
     Active Substance: METHOTREXATE
     Route: 048
  297. METHOTREXATE [Concomitant]
     Active Substance: METHOTREXATE
     Route: 048
  298. METHOTREXATE [Concomitant]
     Active Substance: METHOTREXATE
     Route: 048
  299. METHOTREXATE [Concomitant]
     Active Substance: METHOTREXATE
     Route: 048
  300. METHOTREXATE [Concomitant]
     Active Substance: METHOTREXATE
  301. MYCOPHENOLATE MOFETIL [Concomitant]
     Active Substance: MYCOPHENOLATE MOFETIL
     Indication: Product used for unknown indication
  302. NAPROXEN SODIUM [Concomitant]
     Active Substance: NAPROXEN SODIUM
     Indication: Rheumatoid arthritis
  303. NAPROXEN SODIUM [Concomitant]
     Active Substance: NAPROXEN SODIUM
  304. ALFACALCIDOL [Concomitant]
     Active Substance: ALFACALCIDOL
     Indication: Product used for unknown indication
  305. PERIOGARD [Concomitant]
     Active Substance: CHLORHEXIDINE GLUCONATE
     Indication: Product used for unknown indication
     Route: 048
  306. PERIOGARD [Concomitant]
     Active Substance: CHLORHEXIDINE GLUCONATE
     Route: 002
  307. PERIOGARD [Concomitant]
     Active Substance: CHLORHEXIDINE GLUCONATE
  308. PERIOGARD [Concomitant]
     Active Substance: CHLORHEXIDINE GLUCONATE
  309. PHTHALYLSULFATHIAZOLE [Concomitant]
     Active Substance: PHTHALYLSULFATHIAZOLE
     Indication: Rheumatoid arthritis
     Route: 048
  310. PHTHALYLSULFATHIAZOLE [Concomitant]
     Active Substance: PHTHALYLSULFATHIAZOLE
  311. PHTHALYLSULFATHIAZOLE [Concomitant]
     Active Substance: PHTHALYLSULFATHIAZOLE
  312. PHTHALYLSULFATHIAZOLE [Concomitant]
     Active Substance: PHTHALYLSULFATHIAZOLE
     Route: 042
  313. PHTHALYLSULFATHIAZOLE [Concomitant]
     Active Substance: PHTHALYLSULFATHIAZOLE
     Route: 048
  314. PHTHALYLSULFATHIAZOLE [Concomitant]
     Active Substance: PHTHALYLSULFATHIAZOLE
  315. PHTHALYLSULFATHIAZOLE [Concomitant]
     Active Substance: PHTHALYLSULFATHIAZOLE
     Route: 048
  316. PHTHALYLSULFATHIAZOLE [Concomitant]
     Active Substance: PHTHALYLSULFATHIAZOLE
     Route: 048
  317. PHTHALYLSULFATHIAZOLE [Concomitant]
     Active Substance: PHTHALYLSULFATHIAZOLE
     Route: 048
  318. PHTHALYLSULFATHIAZOLE [Concomitant]
     Active Substance: PHTHALYLSULFATHIAZOLE
     Route: 048
  319. PHTHALYLSULFATHIAZOLE [Concomitant]
     Active Substance: PHTHALYLSULFATHIAZOLE
     Route: 048
  320. PHTHALYLSULFATHIAZOLE [Concomitant]
     Active Substance: PHTHALYLSULFATHIAZOLE
     Route: 058
  321. PHTHALYLSULFATHIAZOLE [Concomitant]
     Active Substance: PHTHALYLSULFATHIAZOLE
     Route: 048
  322. PHTHALYLSULFATHIAZOLE [Concomitant]
     Active Substance: PHTHALYLSULFATHIAZOLE
     Route: 016
  323. PREDNISOLONE [Concomitant]
     Active Substance: PREDNISOLONE
     Indication: Product used for unknown indication
  324. PREDNISOLONE [Concomitant]
     Active Substance: PREDNISOLONE
  325. PREDNISOLONE [Concomitant]
     Active Substance: PREDNISOLONE
     Route: 048
  326. PREDNISOLONE [Concomitant]
     Active Substance: PREDNISOLONE
     Route: 048
  327. PREDNISONE [Concomitant]
     Active Substance: PREDNISONE
     Indication: Rheumatoid arthritis
     Route: 048
  328. PREDNISONE [Concomitant]
     Active Substance: PREDNISONE
     Indication: Psoriatic arthropathy
  329. PREDNISONE [Concomitant]
     Active Substance: PREDNISONE
     Indication: Condition aggravated
     Route: 042
  330. PREDNISONE [Concomitant]
     Active Substance: PREDNISONE
  331. PREDNISONE [Concomitant]
     Active Substance: PREDNISONE
     Route: 048
  332. PREDNISONE [Concomitant]
     Active Substance: PREDNISONE
     Route: 048
  333. PREDNISONE [Concomitant]
     Active Substance: PREDNISONE
     Route: 048
  334. PREDNISONE [Concomitant]
     Active Substance: PREDNISONE
     Route: 048
  335. PREDNISONE [Concomitant]
     Active Substance: PREDNISONE
  336. PREDNISONE [Concomitant]
     Active Substance: PREDNISONE
     Route: 048
  337. PREDNISONE [Concomitant]
     Active Substance: PREDNISONE
  338. PREGABALIN [Concomitant]
     Active Substance: PREGABALIN
     Indication: Product used for unknown indication
  339. PSEUDOEPHEDRINE HYDROCHLORIDE [Concomitant]
     Active Substance: PSEUDOEPHEDRINE HYDROCHLORIDE
     Indication: Product used for unknown indication
  340. PSEUDOEPHEDRINE HYDROCHLORIDE [Concomitant]
     Active Substance: PSEUDOEPHEDRINE HYDROCHLORIDE
  341. PSEUDOEPHEDRINE HYDROCHLORIDE [Concomitant]
     Active Substance: PSEUDOEPHEDRINE HYDROCHLORIDE
  342. PSEUDOEPHEDRINE HYDROCHLORIDE [Concomitant]
     Active Substance: PSEUDOEPHEDRINE HYDROCHLORIDE
  343. CETIRIZINE HYDROCHLORIDE\PSEUDOEPHEDRINE HYDROCHLORIDE [Concomitant]
     Active Substance: CETIRIZINE HYDROCHLORIDE\PSEUDOEPHEDRINE HYDROCHLORIDE
     Indication: Rheumatoid arthritis
  344. CETIRIZINE HYDROCHLORIDE\PSEUDOEPHEDRINE HYDROCHLORIDE [Concomitant]
     Active Substance: CETIRIZINE HYDROCHLORIDE\PSEUDOEPHEDRINE HYDROCHLORIDE
     Route: 048
  345. CETIRIZINE HYDROCHLORIDE\PSEUDOEPHEDRINE HYDROCHLORIDE [Concomitant]
     Active Substance: CETIRIZINE HYDROCHLORIDE\PSEUDOEPHEDRINE HYDROCHLORIDE
  346. CETIRIZINE HYDROCHLORIDE\PSEUDOEPHEDRINE HYDROCHLORIDE [Concomitant]
     Active Substance: CETIRIZINE HYDROCHLORIDE\PSEUDOEPHEDRINE HYDROCHLORIDE
  347. CETIRIZINE HYDROCHLORIDE\PSEUDOEPHEDRINE HYDROCHLORIDE [Concomitant]
     Active Substance: CETIRIZINE HYDROCHLORIDE\PSEUDOEPHEDRINE HYDROCHLORIDE
  348. REMICADE [Concomitant]
     Active Substance: INFLIXIMAB
     Indication: Rheumatoid arthritis
  349. REMICADE [Concomitant]
     Active Substance: INFLIXIMAB
     Route: 042
  350. REMICADE [Concomitant]
     Active Substance: INFLIXIMAB
     Route: 042
  351. RITUXIMAB [Concomitant]
     Active Substance: RITUXIMAB
     Indication: Rheumatoid arthritis
     Route: 058
  352. RITUXIMAB [Concomitant]
     Active Substance: RITUXIMAB
     Route: 042
  353. RITUXIMAB [Concomitant]
     Active Substance: RITUXIMAB
  354. RITUXIMAB [Concomitant]
     Active Substance: RITUXIMAB
     Route: 016
  355. RITUXIMAB [Concomitant]
     Active Substance: RITUXIMAB
     Route: 058
  356. RITUXIMAB [Concomitant]
     Active Substance: RITUXIMAB
     Route: 016
  357. DIETARY SUPPLEMENT\HERBALS [Concomitant]
     Active Substance: DIETARY SUPPLEMENT\HERBALS
     Indication: Product used for unknown indication
     Route: 048
  358. SIMPONI [Concomitant]
     Active Substance: GOLIMUMAB
     Indication: Rheumatoid arthritis
     Route: 058
  359. SIMPONI [Concomitant]
     Active Substance: GOLIMUMAB
     Route: 052
  360. SIMPONI [Concomitant]
     Active Substance: GOLIMUMAB
  361. SIMPONI [Concomitant]
     Active Substance: GOLIMUMAB
     Route: 042
  362. SIMPONI [Concomitant]
     Active Substance: GOLIMUMAB
     Route: 058
  363. STELARA [Concomitant]
     Active Substance: USTEKINUMAB
     Indication: Rheumatoid arthritis
     Route: 042
  364. STELARA [Concomitant]
     Active Substance: USTEKINUMAB
     Route: 058
  365. STELARA [Concomitant]
     Active Substance: USTEKINUMAB
     Route: 042
  366. STELARA [Concomitant]
     Active Substance: USTEKINUMAB
     Route: 058
  367. SULFAMETHOXAZOLE [Concomitant]
     Active Substance: SULFAMETHOXAZOLE
     Indication: Rheumatoid arthritis
  368. SULFAMETHOXAZOLE\TRIMETHOPRIM [Concomitant]
     Active Substance: SULFAMETHOXAZOLE\TRIMETHOPRIM
     Indication: Product used for unknown indication
  369. SULFAMETHOXAZOLE\TRIMETHOPRIM [Concomitant]
     Active Substance: SULFAMETHOXAZOLE\TRIMETHOPRIM
  370. SULFAMETHOXAZOLE\TRIMETHOPRIM [Concomitant]
     Active Substance: SULFAMETHOXAZOLE\TRIMETHOPRIM
  371. SULFAMETHOXAZOLE\TRIMETHOPRIM [Concomitant]
     Active Substance: SULFAMETHOXAZOLE\TRIMETHOPRIM
     Route: 067
  372. SULFASALAZINE [Concomitant]
     Active Substance: SULFASALAZINE
     Indication: Product used for unknown indication
     Route: 048
  373. SULFASALAZINE [Concomitant]
     Active Substance: SULFASALAZINE
     Route: 058
  374. SULFASALAZINE [Concomitant]
     Active Substance: SULFASALAZINE
  375. SULFASALAZINE [Concomitant]
     Active Substance: SULFASALAZINE
     Route: 048
  376. SULFASALAZINE [Concomitant]
     Active Substance: SULFASALAZINE
     Route: 048
  377. SULFASALAZINE [Concomitant]
     Active Substance: SULFASALAZINE
  378. SULFASALAZINE [Concomitant]
     Active Substance: SULFASALAZINE
     Route: 048
  379. SULFASALAZINE [Concomitant]
     Active Substance: SULFASALAZINE
     Route: 058
  380. SULFASALAZINE [Concomitant]
     Active Substance: SULFASALAZINE
     Route: 058
  381. SULFASALAZINE [Concomitant]
     Active Substance: SULFASALAZINE
     Route: 048
  382. SULFASALAZINE [Concomitant]
     Active Substance: SULFASALAZINE
     Route: 048
  383. SULFASALAZINE [Concomitant]
     Active Substance: SULFASALAZINE
     Route: 048
  384. SULFASALAZINE [Concomitant]
     Active Substance: SULFASALAZINE
     Route: 048
  385. SULFASALAZINE [Concomitant]
     Active Substance: SULFASALAZINE
     Route: 048
  386. SULFASALAZINE [Concomitant]
     Active Substance: SULFASALAZINE
     Route: 048
  387. SULFASALAZINE [Concomitant]
     Active Substance: SULFASALAZINE
     Route: 048
  388. SULFASALAZINE [Concomitant]
     Active Substance: SULFASALAZINE
     Route: 048
  389. SULFASALAZINE [Concomitant]
     Active Substance: SULFASALAZINE
  390. SULFASALAZINE [Concomitant]
     Active Substance: SULFASALAZINE
     Route: 048
  391. SULFASALAZINE [Concomitant]
     Active Substance: SULFASALAZINE
     Route: 048
  392. SULFASALAZINE [Concomitant]
     Active Substance: SULFASALAZINE
  393. SULFASALAZINE [Concomitant]
     Active Substance: SULFASALAZINE
     Route: 048
  394. SULFASALAZINE [Concomitant]
     Active Substance: SULFASALAZINE
  395. SULFASALAZINE [Concomitant]
     Active Substance: SULFASALAZINE
     Route: 048
  396. SULFASALAZINE [Concomitant]
     Active Substance: SULFASALAZINE
  397. SULFASALAZINE [Concomitant]
     Active Substance: SULFASALAZINE
     Route: 048
  398. SULFASALAZINE [Concomitant]
     Active Substance: SULFASALAZINE
     Route: 048
  399. SULFASALAZINE [Concomitant]
     Active Substance: SULFASALAZINE
     Route: 048
  400. SULFASALAZINE [Concomitant]
     Active Substance: SULFASALAZINE
     Route: 048
  401. SULFASALAZINE [Concomitant]
     Active Substance: SULFASALAZINE
     Route: 048
  402. SULFASALAZINE [Concomitant]
     Active Substance: SULFASALAZINE
  403. SULFASALAZINE [Concomitant]
     Active Substance: SULFASALAZINE
     Route: 048
  404. TOFACITINIB CITRATE [Concomitant]
     Active Substance: TOFACITINIB CITRATE
     Indication: Rheumatoid arthritis
  405. TOFACITINIB CITRATE [Concomitant]
     Active Substance: TOFACITINIB CITRATE
     Indication: Psoriatic arthropathy
     Route: 048
  406. TOFACITINIB CITRATE [Concomitant]
     Active Substance: TOFACITINIB CITRATE
     Route: 048
  407. TOFACITINIB CITRATE [Concomitant]
     Active Substance: TOFACITINIB CITRATE
  408. TOFACITINIB CITRATE [Concomitant]
     Active Substance: TOFACITINIB CITRATE
     Route: 058
  409. VITAMIN C [Concomitant]
     Active Substance: ASCORBIC ACID
     Indication: Product used for unknown indication
  410. PREDNISONE [Concomitant]
     Active Substance: PREDNISONE
     Indication: Rheumatoid arthritis
     Route: 048
  411. XELJANZ [Concomitant]
     Active Substance: TOFACITINIB CITRATE
     Indication: Rheumatoid arthritis
  412. XELJANZ [Concomitant]
     Active Substance: TOFACITINIB CITRATE
  413. XELJANZ [Concomitant]
     Active Substance: TOFACITINIB CITRATE
     Route: 048
  414. XELJANZ [Concomitant]
     Active Substance: TOFACITINIB CITRATE
  415. XELJANZ [Concomitant]
     Active Substance: TOFACITINIB CITRATE
  416. XELJANZ [Concomitant]
     Active Substance: TOFACITINIB CITRATE
     Route: 048
  417. XELJANZ [Concomitant]
     Active Substance: TOFACITINIB CITRATE
  418. XELJANZ [Concomitant]
     Active Substance: TOFACITINIB CITRATE
  419. XELJANZ [Concomitant]
     Active Substance: TOFACITINIB CITRATE
  420. XELJANZ [Concomitant]
     Active Substance: TOFACITINIB CITRATE
  421. COD LIVER OIL [Concomitant]
     Active Substance: COD LIVER OIL
     Indication: Product used for unknown indication
  422. TUMS [Concomitant]
     Active Substance: CALCIUM CARBONATE
     Indication: Product used for unknown indication
  423. ALFACALCIDOL [Concomitant]
     Active Substance: ALFACALCIDOL
     Indication: Product used for unknown indication
  424. CHLORHEXIDINE GLUCONATE\ISOPROPYL ALCOHOL [Concomitant]
     Active Substance: CHLORHEXIDINE GLUCONATE\ISOPROPYL ALCOHOL
     Indication: Product used for unknown indication
     Route: 002
  425. CHLORHEXIDINE GLUCONATE\ISOPROPYL ALCOHOL [Concomitant]
     Active Substance: CHLORHEXIDINE GLUCONATE\ISOPROPYL ALCOHOL
     Route: 061
  426. CHLORHEXIDINE GLUCONATE\ISOPROPYL ALCOHOL [Concomitant]
     Active Substance: CHLORHEXIDINE GLUCONATE\ISOPROPYL ALCOHOL
  427. CHLORHEXIDINE GLUCONATE\ISOPROPYL ALCOHOL [Concomitant]
     Active Substance: CHLORHEXIDINE GLUCONATE\ISOPROPYL ALCOHOL
     Route: 048
  428. EMEND [Concomitant]
     Active Substance: APREPITANT
     Indication: Product used for unknown indication
  429. EMEND [Concomitant]
     Active Substance: APREPITANT
     Route: 042
  430. EMEND [Concomitant]
     Active Substance: APREPITANT
     Route: 048
  431. FLUMETHASONE PIVALATE [Concomitant]
     Active Substance: FLUMETHASONE PIVALATE
     Indication: Rheumatoid arthritis
     Route: 003
  432. FLUMETHASONE PIVALATE [Concomitant]
     Active Substance: FLUMETHASONE PIVALATE
  433. OTEZLA [Concomitant]
     Active Substance: APREMILAST
     Indication: Product used for unknown indication
     Route: 048
  434. OTEZLA [Concomitant]
     Active Substance: APREMILAST
  435. CETIRIZINE HYDROCHLORIDE [Concomitant]
     Active Substance: CETIRIZINE HYDROCHLORIDE
     Indication: Rheumatoid arthritis
  436. CETIRIZINE HYDROCHLORIDE [Concomitant]
     Active Substance: CETIRIZINE HYDROCHLORIDE
     Route: 016
  437. DICLOFENAC [Concomitant]
     Active Substance: DICLOFENAC
     Indication: Product used for unknown indication

REACTIONS (1)
  - Death [Fatal]
